FAERS Safety Report 9699320 (Version 1)
Quarter: 2013Q4

REPORT INFORMATION
  Report Type: Spontaneous
  Country: US (occurrence: US)
  Receive Date: 20131120
  Receipt Date: 20131120
  Transmission Date: 20140711
  Serious: No
  Sender: FDA-Public Use
  Company Number: US-GILEAD-2008-0015579

PATIENT
  Sex: Female

DRUGS (10)
  1. LETAIRIS [Suspect]
     Indication: PULMONARY ARTERIAL HYPERTENSION
     Route: 048
     Dates: start: 20080201
  2. REVATIO [Concomitant]
     Indication: PULMONARY ARTERIAL HYPERTENSION
     Route: 048
  3. WARFARIN [Concomitant]
     Indication: PULMONARY ARTERIAL HYPERTENSION
     Route: 048
  4. FUROSEMIDE [Concomitant]
     Indication: OEDEMA
     Route: 048
  5. SPIRONOLACTONE [Concomitant]
     Indication: OEDEMA
     Route: 048
  6. DIGOXIN [Concomitant]
     Indication: CARDIAC DISORDER
     Route: 048
  7. NEURONTIN [Concomitant]
     Route: 048
  8. PERCOCET [Concomitant]
     Dosage: PRN
     Route: 048
  9. MORPHINE SULFATE [Concomitant]
     Route: 048
  10. ALBUTEROL AER HFA [Concomitant]
     Route: 055

REACTIONS (1)
  - Nasal congestion [Not Recovered/Not Resolved]
